FAERS Safety Report 7818934-4 (Version None)
Quarter: 2011Q4

REPORT INFORMATION
  Report Type: 
  Country: None (occurrence: None)
  Receive Date: 20111018
  Receipt Date: 20111007
  Transmission Date: 20120403
  Serious: Yes (Other)
  Sender: FDA-Public Use
  Company Number: NO-JNJFOC-20110813045

PATIENT
  Age: 18 Year
  Sex: Female

DRUGS (4)
  1. REMICADE [Suspect]
     Indication: COLITIS ULCERATIVE
     Dosage: THE LAST TWO INFUSIONS
     Route: 042
  2. PENTASA [Concomitant]
     Indication: COLITIS ULCERATIVE
     Route: 065
  3. REMICADE [Suspect]
     Route: 042
     Dates: start: 20110215
  4. IMURAN [Concomitant]
     Indication: COLITIS ULCERATIVE
     Route: 065
     Dates: start: 20110201

REACTIONS (3)
  - DIARRHOEA HAEMORRHAGIC [None]
  - COLITIS [None]
  - LYME DISEASE [None]
